FAERS Safety Report 11117557 (Version 1)
Quarter: 2015Q2

REPORT INFORMATION
  Report Type: Spontaneous
  Country: IN (occurrence: IN)
  Receive Date: 20150517
  Receipt Date: 20150517
  Transmission Date: 20150821
  Serious: Yes (Other)
  Sender: FDA-Public Use
  Company Number: PHHY2015IN058683

PATIENT
  Age: 55 Year
  Sex: Male

DRUGS (2)
  1. CERTICAN [Suspect]
     Active Substance: EVEROLIMUS
     Indication: TRANSPLANT
     Dosage: 0.5 MG, BID
     Route: 048
     Dates: start: 201503, end: 20150511
  2. TACROLIMUS. [Concomitant]
     Active Substance: TACROLIMUS
     Indication: TRANSPLANT
     Route: 048

REACTIONS (1)
  - Left ventricular failure [Recovering/Resolving]

NARRATIVE: CASE EVENT DATE: 20150511
